FAERS Safety Report 6766458-8 (Version None)
Quarter: 2010Q2

REPORT INFORMATION
  Report Type: 
  Country: None (occurrence: None)
  Receive Date: 20100611
  Receipt Date: 20100601
  Transmission Date: 20101027
  Serious: Yes (Other)
  Sender: FDA-Public Use
  Company Number: US-PFIZER INC-2010063564

PATIENT
  Sex: Female
  Weight: 63.3 kg

DRUGS (14)
  1. AROMASIN [Suspect]
     Indication: BREAST CANCER
     Dosage: 25 MG, DAILY
     Route: 048
     Dates: start: 20070501
  2. GLUCOSAMINE [Concomitant]
     Dosage: UNK
  3. EXCEDRIN (MIGRAINE) [Concomitant]
     Indication: HEADACHE
     Dosage: UNK, AS NEEDED
  4. ATENOLOL [Concomitant]
     Dosage: 25 MG, DAILY
  5. CALCIUM [Concomitant]
     Dosage: UNK
  6. VITAMIN D [Concomitant]
  7. FUROSEMIDE [Concomitant]
     Dosage: 20 MG, DAILY
  8. GABAPENTIN [Concomitant]
     Dosage: 600 MG, EVERY EVENING
     Route: 048
  9. IBUPROFEN [Concomitant]
     Indication: ARTHRALGIA
     Dosage: UNK, AS NEEDED
  10. LOSARTAN [Concomitant]
     Dosage: 25 MG, DAILY
     Route: 048
  11. ALBUTEROL [Concomitant]
     Dosage: UNK, AS NEEDED
  12. FLOVENT [Concomitant]
     Dosage: UNK, AS NEEDED
  13. FLONASE [Concomitant]
     Dosage: UNK, AS NEEDED
  14. ACETAMINOPHEN [Concomitant]
     Indication: PAIN

REACTIONS (5)
  - JOINT STIFFNESS [None]
  - MUSCLE SPASMS [None]
  - NODAL OSTEOARTHRITIS [None]
  - OSTEOPENIA [None]
  - TRANSAMINASES INCREASED [None]
